FAERS Safety Report 10218965 (Version 1)
Quarter: 2014Q2

REPORT INFORMATION
  Report Type: Report from Study
  Country: DE (occurrence: DE)
  Receive Date: 20140605
  Receipt Date: 20140605
  Transmission Date: 20141212
  Serious: Yes (Hospitalization, Other)
  Sender: FDA-Public Use
  Company Number: DE-BAYER-2014-078947

PATIENT
  Age: 55 Year
  Sex: Female

DRUGS (1)
  1. BETAFERON [Suspect]
     Indication: MULTIPLE SCLEROSIS
     Dosage: 250 ?G, QOD
     Route: 058
     Dates: start: 20121001, end: 20140428

REACTIONS (6)
  - Palpitations [Recovered/Resolved]
  - Adverse event [Recovered/Resolved]
  - Oedema [Recovered/Resolved]
  - Rhinitis [None]
  - Cough [None]
  - Influenza like illness [Recovered/Resolved]
